FAERS Safety Report 4844554-X (Version None)
Quarter: 2005Q4

REPORT INFORMATION
  Report Type: 
  Country: None (occurrence: None)
  Receive Date: 20051130
  Receipt Date: 20051130
  Transmission Date: 20060501
  Serious: Yes (Other)
  Sender: FDA-Public Use
  Company Number: None

PATIENT
  Sex: Female
  Weight: 54.4316 kg

DRUGS (2)
  1. TESTOSTERONE [Suspect]
     Indication: HYSTERECTOMY
     Dates: start: 20050907
  2. ESTROGEN 3 @ 25ML PELLETS [Suspect]
     Indication: HORMONE REPLACEMENT THERAPY
     Dates: start: 20050907

REACTIONS (2)
  - ALOPECIA [None]
  - DRUG TOXICITY [None]
